FAERS Safety Report 4346118-3 (Version None)
Quarter: 2004Q2

REPORT INFORMATION
  Report Type: 
  Country: None (occurrence: None)
  Receive Date: 20040423
  Receipt Date: 20040423
  Transmission Date: 20050107
  Serious: No
  Sender: FDA-Public Use
  Company Number: None

PATIENT
  Age: 54 Year
  Sex: Female
  Weight: 65.318 kg

DRUGS (2)
  1. ZICAM COLD REMEDY ZINCUM 2X GLUCONICUM [Suspect]
     Indication: NASOPHARYNGITIS
     Dosage: WHEN NEEDED BY NOSE
     Dates: start: 20040201, end: 20040314
  2. ZICAM COLD REMEDY ZINCUM 2X GLUCONICUM [Suspect]
     Indication: PROPHYLAXIS
     Dosage: WHEN NEEDED BY NOSE
     Dates: start: 20040201, end: 20040314

REACTIONS (3)
  - AGEUSIA [None]
  - ANOSMIA [None]
  - NASAL DISCOMFORT [None]
